FAERS Safety Report 23580225 (Version 1)
Quarter: 2024Q1

REPORT INFORMATION
  Report Type: Report from Study
  Country: US (occurrence: None)
  Receive Date: 20240229
  Receipt Date: 20240229
  Transmission Date: 20240410
  Serious: Yes (Other)
  Sender: FDA-Public Use
  Company Number: 2024A045279

PATIENT
  Sex: Male

DRUGS (1)
  1. CALQUENCE [Suspect]
     Active Substance: ACALABRUTINIB
     Indication: Non-Hodgkin^s lymphoma
     Route: 048
     Dates: start: 20220929

REACTIONS (6)
  - Cardiac amyloidosis [Unknown]
  - Lymphoedema [Unknown]
  - Joint stiffness [Unknown]
  - Lymphadenopathy [Recovered/Resolved]
  - Arthralgia [Unknown]
  - Fatigue [Unknown]
